FAERS Safety Report 9797171 (Version 1)
Quarter: 2014Q1

REPORT INFORMATION
  Report Type: Spontaneous
  Country: CN (occurrence: CN)
  Receive Date: 20140106
  Receipt Date: 20140106
  Transmission Date: 20141002
  Serious: Yes (Death, Hospitalization)
  Sender: FDA-Public Use
  Company Number: CN-ROCHE-1328842

PATIENT
  Sex: 0

DRUGS (2)
  1. CEFTRIAXONE SODIUM [Suspect]
     Indication: TOOTHACHE
     Route: 042
  2. GENTAMYCIN SULFATE [Concomitant]
     Indication: TOOTHACHE
     Route: 030

REACTIONS (4)
  - Death [Fatal]
  - Dizziness [Unknown]
  - Dyspnoea [Unknown]
  - Chest discomfort [Unknown]
